FAERS Safety Report 4784054-9 (Version None)
Quarter: 2005Q3

REPORT INFORMATION
  Report Type: 
  Country: None (occurrence: None)
  Receive Date: 20050928
  Receipt Date: 20050914
  Transmission Date: 20060218
  Serious: Yes (Death, Hospitalization)
  Sender: FDA-Public Use
  Company Number: 2005125875

PATIENT
  Sex: Male

DRUGS (8)
  1. MACUGEN [Suspect]
     Indication: ILL-DEFINED DISORDER
     Dosage: INTRAVITREOUS
     Dates: end: 20050805
  2. PLAVIX [Concomitant]
  3. ALAPRIL (LISINOPRIL) [Concomitant]
  4. ALL OTHER THERAPEUTIC PRODUCTS (ALL OTHER THERAPEUTIC PRODUCTS) [Concomitant]
  5. LIPITOR [Concomitant]
  6. ALBUTEROL [Concomitant]
  7. ALPRAZOLAM [Concomitant]
  8. VALIUM [Concomitant]

REACTIONS (13)
  - ABDOMINAL HERNIA [None]
  - DISCOMFORT [None]
  - EYE OPERATION COMPLICATION [None]
  - HYPERTENSION [None]
  - ILIAC VEIN THROMBOSIS [None]
  - INTESTINAL PERFORATION [None]
  - OPTIC NERVE DISORDER [None]
  - POST PROCEDURAL COMPLICATION [None]
  - POSTOPERATIVE INFECTION [None]
  - PROCEDURAL COMPLICATION [None]
  - RENAL FAILURE [None]
  - SEPSIS [None]
  - SURGICAL PROCEDURE REPEATED [None]
